FAERS Safety Report 19473375 (Version 2)
Quarter: 2021Q3

REPORT INFORMATION
  Report Type: Report from Study
  Country: CA (occurrence: CA)
  Receive Date: 20210629
  Receipt Date: 20210703
  Transmission Date: 20211014
  Serious: Yes (Other)
  Sender: FDA-Public Use
  Company Number: CA-TAKEDA-2021TUS036080

PATIENT
  Age: 49 Year
  Sex: Male

DRUGS (5)
  1. CUVITRU [Suspect]
     Active Substance: HUMAN IMMUNOGLOBULIN G
     Indication: PRIMARY IMMUNODEFICIENCY SYNDROME
     Dosage: 8 GRAM, 1/WEEK
     Route: 065
     Dates: start: 20210603
  2. IMMUNOGLOBULIN HUMAN [Concomitant]
     Active Substance: HUMAN IMMUNOGLOBULIN G
     Dosage: UNK
     Route: 042
     Dates: start: 20210426
  3. VALCYTE [Concomitant]
     Active Substance: VALGANCICLOVIR HYDROCHLORIDE
     Indication: CYTOMEGALOVIRUS INFECTION
     Dosage: 900 MILLIGRAM, TWICE A DAY FOR 3 WEEKS
     Route: 048
     Dates: start: 20210615
  4. LASIX [Concomitant]
     Active Substance: FUROSEMIDE
     Dosage: UNK
     Dates: start: 20210624
  5. CUVITRU [Suspect]
     Active Substance: HUMAN IMMUNOGLOBULIN G
     Dosage: 8 GRAM, 1/WEEK
     Route: 065
     Dates: start: 20210603

REACTIONS (4)
  - Infusion site pain [Unknown]
  - Dizziness [Unknown]
  - Cytomegalovirus infection [Unknown]
  - Weight increased [Unknown]

NARRATIVE: CASE EVENT DATE: 20210603
